FAERS Safety Report 4651283-4 (Version None)
Quarter: 2005Q2

REPORT INFORMATION
  Report Type: 
  Country: None (occurrence: None)
  Receive Date: 20050503
  Receipt Date: 20050422
  Transmission Date: 20051028
  Serious: Yes (Hospitalization, Other)
  Sender: FDA-Public Use
  Company Number: FR-BRISTOL-MYERS SQUIBB COMPANY-12948915

PATIENT
  Age: 62 Year
  Sex: Female

DRUGS (8)
  1. GLUCOPHAGE [Suspect]
     Indication: DIABETES MELLITUS NON-INSULIN-DEPENDENT
     Route: 048
  2. PROFENID [Suspect]
     Indication: PERITONSILLITIS
     Route: 030
     Dates: start: 20050127, end: 20050129
  3. NISISCO [Suspect]
     Indication: HYPERTENSION
     Route: 048
  4. DIAMICRON [Suspect]
     Indication: DIABETES MELLITUS NON-INSULIN-DEPENDENT
     Route: 048
  5. ROCEPHIN [Suspect]
     Indication: PERITONSILLITIS
     Route: 030
     Dates: start: 20050127
  6. ICAZ [Suspect]
     Indication: HYPERTENSION
     Route: 048
  7. DOLIPRANE [Concomitant]
     Indication: PERITONSILLITIS
     Route: 048
  8. LESCOL [Concomitant]
     Indication: DYSLIPIDAEMIA
     Route: 048

REACTIONS (5)
  - HYPOGLYCAEMIA [None]
  - LACTIC ACIDOSIS [None]
  - LOCALISED INFECTION [None]
  - PERFORATED ULCER [None]
  - RENAL FAILURE ACUTE [None]
